FAERS Safety Report 12527404 (Version 1)
Quarter: 2016Q3

REPORT INFORMATION
  Report Type: Report from Study
  Country: CR (occurrence: CR)
  Receive Date: 20160705
  Receipt Date: 20160705
  Transmission Date: 20161109
  Serious: Yes (Other)
  Sender: FDA-Public Use
  Company Number: CR-ABBVIE-16K-039-1666519-00

PATIENT
  Sex: Male

DRUGS (1)
  1. HUMIRA [Suspect]
     Active Substance: ADALIMUMAB
     Indication: CROHN^S DISEASE
     Route: 058
     Dates: start: 20110303

REACTIONS (4)
  - Tracheal stenosis [Recovering/Resolving]
  - Post procedural complication [Not Recovered/Not Resolved]
  - Anal fistula [Recovering/Resolving]
  - Oropharyngeal pain [Not Recovered/Not Resolved]
